FAERS Safety Report 14779552 (Version 4)
Quarter: 2018Q4

REPORT INFORMATION
  Report Type: Not Available
  Country: US (occurrence: US)
  Receive Date: 20180419
  Receipt Date: 20181220
  Transmission Date: 20190204
  Serious: No
  Sender: FDA-Public Use
  Company Number: US-NEUROCRINE BIOSCIENCES INC.-2018NBI00950

PATIENT
  Age: 48 Year
  Sex: Male

DRUGS (6)
  1. INGREZZA [Suspect]
     Active Substance: VALBENAZINE
     Indication: TARDIVE DYSKINESIA
     Route: 048
     Dates: start: 20170710, end: 20170717
  2. PROPRANOLOL [Concomitant]
     Active Substance: PROPRANOLOL HYDROCHLORIDE
     Dosage: PRN
     Route: 048
     Dates: start: 20170911
  3. SEROQUEL [Concomitant]
     Active Substance: QUETIAPINE FUMARATE
     Dosage: 25-50 MG
     Route: 048
     Dates: start: 20170911
  4. INGREZZA [Suspect]
     Active Substance: VALBENAZINE
     Route: 048
     Dates: start: 20181116
  5. WELLBUTRIN XL [Concomitant]
     Active Substance: BUPROPION HYDROCHLORIDE
     Route: 048
     Dates: start: 20170911
  6. INGREZZA [Suspect]
     Active Substance: VALBENAZINE
     Dates: start: 20181116

REACTIONS (3)
  - Fall [Not Recovered/Not Resolved]
  - Drug effect incomplete [None]
  - Dysarthria [Recovering/Resolving]

NARRATIVE: CASE EVENT DATE: 20181114
